FAERS Safety Report 6808257-4 (Version None)
Quarter: 2010Q2

REPORT INFORMATION
  Report Type: 
  Country: None (occurrence: None)
  Receive Date: 20100629
  Receipt Date: 20090422
  Transmission Date: 20101027
  Serious: No
  Sender: FDA-Public Use
  Company Number: US-PFIZER INC-2009202248

PATIENT
  Sex: Male
  Weight: 63 kg

DRUGS (4)
  1. VIAGRA [Suspect]
     Indication: ERECTILE DYSFUNCTION
     Dosage: UNK
     Dates: start: 19980101
  2. LIPITOR [Concomitant]
     Indication: BLOOD CHOLESTEROL INCREASED
     Dosage: UNK
  3. ACETYLSALICYLIC ACID [Concomitant]
     Dosage: UNK
  4. ST. JOHN'S WORT [Concomitant]
     Dosage: UNK

REACTIONS (5)
  - CHROMATOPSIA [None]
  - DIZZINESS [None]
  - FLUSHING [None]
  - HEADACHE [None]
  - NAUSEA [None]
